FAERS Safety Report 20522932 (Version 3)
Quarter: 2025Q3

REPORT INFORMATION
  Report Type: Spontaneous
  Country: US (occurrence: US)
  Receive Date: 20220227
  Receipt Date: 20250819
  Transmission Date: 20251020
  Serious: No
  Sender: SANOFI AVENTIS
  Company Number: US-SANOFI-00945165

PATIENT
  Age: 80 Year
  Sex: Male
  Weight: 90.91 kg

DRUGS (22)
  1. DUPIXENT [Suspect]
     Active Substance: DUPILUMAB
     Indication: Eczema
     Route: 058
  2. DUPIXENT [Suspect]
     Active Substance: DUPILUMAB
     Indication: Dermatitis atopic
     Dosage: 300 MG, QOW
     Route: 058
     Dates: start: 202201
  3. DUPIXENT [Suspect]
     Active Substance: DUPILUMAB
     Indication: Dermatitis atopic
     Dosage: 300 MG, QOW
     Route: 058
  4. CLOBETASOL [Concomitant]
     Active Substance: CLOBETASOL
  5. MODERNA COVID-19 VACCINE [Concomitant]
     Active Substance: ELASOMERAN
  6. POTASSIUM [Concomitant]
     Active Substance: POTASSIUM
  7. VITAMIN E [Concomitant]
     Active Substance: .ALPHA.-TOCOPHEROL
  8. DIETARY SUPPLEMENT\HERBALS\MILK THISTLE [Concomitant]
     Active Substance: MILK THISTLE
  9. MAGNESIUM [Concomitant]
     Active Substance: MAGNESIUM
  10. DOCUSATE SODIUM [Concomitant]
     Active Substance: DOCUSATE SODIUM
  11. VITAMIN D3 [Concomitant]
     Active Substance: CHOLECALCIFEROL
  12. ZINC 220 [Concomitant]
  13. INSULIN ASPART [Concomitant]
     Active Substance: INSULIN ASPART
  14. CALCIUM [Concomitant]
     Active Substance: CALCIUM
  15. ACETAMINOPHEN\HYDROCODONE [Concomitant]
     Active Substance: ACETAMINOPHEN\HYDROCODONE
  16. HYDROXYZINE HYDROCHLORIDE [Concomitant]
     Active Substance: HYDROXYZINE HYDROCHLORIDE
  17. CELECOXIB [Concomitant]
     Active Substance: CELECOXIB
  18. ATORVASTATIN CALCIUM [Concomitant]
     Active Substance: ATORVASTATIN CALCIUM
  19. METFORMIN HYDROCHLORIDE [Concomitant]
     Active Substance: METFORMIN HYDROCHLORIDE
  20. LOSARTAN POTASSIUM [Concomitant]
     Active Substance: LOSARTAN POTASSIUM
  21. OMEPRAZOLE [Concomitant]
     Active Substance: OMEPRAZOLE
  22. XTANDI [Concomitant]
     Active Substance: ENZALUTAMIDE

REACTIONS (6)
  - Scratch [Recovering/Resolving]
  - Insomnia [Unknown]
  - Pruritus [Unknown]
  - Product dose omission issue [Unknown]
  - Device malfunction [Unknown]
  - Wrong technique in product usage process [Unknown]
